FAERS Safety Report 4587240-6 (Version None)
Quarter: 2005Q1

REPORT INFORMATION
  Report Type: 
  Country: None (occurrence: None)
  Receive Date: 20050218
  Receipt Date: 20050121
  Transmission Date: 20050727
  Serious: Yes (Disabling)
  Sender: FDA-Public Use
  Company Number: BE-GLAXOSMITHKLINE-B0369189A

PATIENT
  Age: 50 Year
  Sex: Male
  Weight: 110 kg

DRUGS (6)
  1. PAROXETINE HCL [Suspect]
     Indication: ANXIETY
     Route: 065
     Dates: start: 20041001
  2. INDERAL RETARD [Concomitant]
     Dosage: 80MG PER DAY
     Route: 048
     Dates: start: 19900101
  3. LIPITOR [Concomitant]
     Dosage: 10MG PER DAY
     Route: 048
     Dates: start: 20040930
  4. AMLOR [Concomitant]
     Dosage: 5MG PER DAY
     Route: 048
     Dates: start: 20040713
  5. PANTOPRAZOLE SODIUM [Concomitant]
     Dosage: 20NG PER DAY
     Route: 048
     Dates: start: 20030628
  6. ZYBAN [Concomitant]
     Dosage: 2U PER DAY
     Route: 048
     Dates: start: 20040815, end: 20040930

REACTIONS (5)
  - DERMATITIS ATOPIC [None]
  - DISABILITY [None]
  - DRY SKIN [None]
  - ERYTHEMA [None]
  - HYPERHIDROSIS [None]
